FAERS Safety Report 9724457 (Version 2)
Quarter: 2013Q4

REPORT INFORMATION
  Report Type: Spontaneous
  Country: US (occurrence: US)
  Receive Date: 20131202
  Receipt Date: 20131202
  Transmission Date: 20140711
  Serious: No
  Sender: FDA-Public Use
  Company Number: US-AMGEN-USASP2013079284

PATIENT
  Age: 45 Year
  Sex: Female
  Weight: 194 kg

DRUGS (3)
  1. ENBREL [Suspect]
     Indication: PSORIATIC ARTHROPATHY
     Dosage: 50 MG, QWK
     Route: 058
     Dates: start: 20030501
  2. OMEPRAZOLE [Concomitant]
     Dosage: 20 MG, QD
     Route: 048
  3. ULTRAM                             /00599202/ [Concomitant]
     Dosage: 50 MG, TID
     Route: 048

REACTIONS (4)
  - Ligament sprain [Not Recovered/Not Resolved]
  - Local swelling [Not Recovered/Not Resolved]
  - Fall [Not Recovered/Not Resolved]
  - Ligament rupture [Not Recovered/Not Resolved]
